FAERS Safety Report 18809388 (Version 2)
Quarter: 2021Q1

REPORT INFORMATION
  Report Type: Spontaneous
  Country: US (occurrence: US)
  Receive Date: 20210129
  Receipt Date: 20210311
  Transmission Date: 20210419
  Serious: Yes (Hospitalization)
  Sender: FDA-Public Use
  Company Number: US-TEVA-2021-US-1873849

PATIENT
  Age: 45 Year
  Sex: Female

DRUGS (11)
  1. ESTRACE [Suspect]
     Active Substance: ESTRADIOL
     Indication: HOT FLUSH
  2. XELJANZ [Concomitant]
     Active Substance: TOFACITINIB CITRATE
     Indication: RHEUMATOID ARTHRITIS
  3. ESTRACE [Suspect]
     Active Substance: ESTRADIOL
     Indication: HYSTERECTOMY
  4. ENDOMETHICIN [Concomitant]
  5. SKELAXIN [Concomitant]
     Active Substance: METAXALONE
  6. FOLIC ACID. [Concomitant]
     Active Substance: FOLIC ACID
  7. NORCO [Concomitant]
     Active Substance: ACETAMINOPHEN\HYDROCODONE BITARTRATE
     Indication: ARTHRALGIA
  8. ESTRACE [Suspect]
     Active Substance: ESTRADIOL
     Indication: UTERINE CANCER
     Route: 048
     Dates: start: 201410, end: 201810
  9. PLAQUENIL [Concomitant]
     Active Substance: HYDROXYCHLOROQUINE SULFATE
  10. METHOTREXATE. [Concomitant]
     Active Substance: METHOTREXATE
  11. NEURONTIN [Concomitant]
     Active Substance: GABAPENTIN

REACTIONS (1)
  - Pulmonary embolism [Recovered/Resolved]

NARRATIVE: CASE EVENT DATE: 201810
